FAERS Safety Report 5935865-5 (Version None)
Quarter: 2008Q4

REPORT INFORMATION
  Report Type: 
  Country: None (occurrence: None)
  Receive Date: 20081030
  Receipt Date: 20081020
  Transmission Date: 20090506
  Serious: Yes (Other)
  Sender: FDA-Public Use
  Company Number: US-BAXTER-2008BH011250

PATIENT
  Sex: Male

DRUGS (1)
  1. IMMUNE GLOBULIN INTRAVENOUS (HUMAN) [Suspect]
     Indication: IDIOPATHIC THROMBOCYTOPENIC PURPURA
     Dosage: DOSE UNIT:UNKNOWN
     Route: 042
     Dates: start: 20081001

REACTIONS (3)
  - LUNG DISORDER [None]
  - PETECHIAE [None]
  - RENAL FAILURE ACUTE [None]
